FAERS Safety Report 12440184 (Version 1)
Quarter: 2016Q2

REPORT INFORMATION
  Report Type: Spontaneous
  Country: US (occurrence: US)
  Receive Date: 20160606
  Receipt Date: 20160606
  Transmission Date: 20160815
  Serious: No
  Sender: FDA-Public Use
  Company Number: US-AMGEN-USASP2015116263

PATIENT
  Age: 57 Year

DRUGS (4)
  1. EPOGEN [Suspect]
     Active Substance: ERYTHROPOIETIN
     Indication: PRODUCT USED FOR UNKNOWN INDICATION
     Dosage: UNK UNK, 3 TIMES/WK
     Route: 065
     Dates: start: 201408
  2. EPOGEN [Suspect]
     Active Substance: ERYTHROPOIETIN
  3. EPOGEN [Suspect]
     Active Substance: ERYTHROPOIETIN
     Dosage: 20000 UNIT, THREE TIMES WEEKLY
     Route: 065
  4. EPOGEN [Suspect]
     Active Substance: ERYTHROPOIETIN
     Dosage: UNK, TWICE WEEKLY
     Route: 065

REACTIONS (2)
  - Therapeutic response decreased [Unknown]
  - Treatment noncompliance [Unknown]
